FAERS Safety Report 8408380-7 (Version None)
Quarter: 2012Q2

REPORT INFORMATION
  Report Type: 
  Country: None (occurrence: None)
  Receive Date: 20120604
  Receipt Date: 20120529
  Transmission Date: 20120825
  Serious: Yes (Other)
  Sender: FDA-Public Use
  Company Number: US-JNJFOC-20120520238

PATIENT
  Age: 11 Month
  Sex: Female
  Weight: 11.34 kg

DRUGS (2)
  1. DESITIN CREAMY OINTMENT TUBE [Suspect]
     Indication: RASH
     Dosage: NICKEL SIZE AMOUNT
     Route: 061
     Dates: start: 20120518, end: 20120522
  2. UNKNOWN MEDICATION [Concomitant]
     Route: 065

REACTIONS (7)
  - APPLICATION SITE INFECTION [None]
  - APPLICATION SITE EXFOLIATION [None]
  - DRUG INEFFECTIVE [None]
  - APPLICATION SITE BLEEDING [None]
  - CONDITION AGGRAVATED [None]
  - APPLICATION SITE INFLAMMATION [None]
  - APPLICATION SITE PAIN [None]
